FAERS Safety Report 4674282-5 (Version None)
Quarter: 2005Q2

REPORT INFORMATION
  Report Type: 
  Country: None (occurrence: None)
  Receive Date: 20050524
  Receipt Date: 20050509
  Transmission Date: 20051028
  Serious: No
  Sender: FDA-Public Use
  Company Number: USA050393974

PATIENT
  Age: 16 Year
  Sex: Female
  Weight: 66 kg

DRUGS (2)
  1. STRATTERA [Suspect]
     Indication: ATTENTION DEFICIT/HYPERACTIVITY DISORDER
     Dosage: 40 MG DAY
     Dates: start: 20050127, end: 20050315
  2. CLONIDINE [Concomitant]

REACTIONS (5)
  - ANOREXIA [None]
  - BILIRUBIN CONJUGATED INCREASED [None]
  - BLOOD BILIRUBIN INCREASED [None]
  - OCULAR ICTERUS [None]
  - PALLOR [None]
